FAERS Safety Report 24747827 (Version 1)
Quarter: 2024Q4

REPORT INFORMATION
  Report Type: Spontaneous
  Country: US (occurrence: None)
  Receive Date: 20241217
  Receipt Date: 20241217
  Transmission Date: 20250115
  Serious: Yes (Hospitalization)
  Sender: Public
  Company Number: None

PATIENT
  Sex: Female

DRUGS (3)
  1. TADALAFIL [Suspect]
     Active Substance: TADALAFIL
     Indication: Pulmonary arterial hypertension
     Dosage: 40MG ONCE DAILY PO?
     Route: 048
     Dates: start: 202412
  2. TREPROSTINIL DIOLAMINE [Suspect]
     Active Substance: TREPROSTINIL DIOLAMINE
  3. REMODULIN [Suspect]
     Active Substance: TREPROSTINIL

REACTIONS (2)
  - Right ventricular failure [None]
  - Therapy change [None]
